FAERS Safety Report 9924624 (Version 4)
Quarter: 2014Q2

REPORT INFORMATION
  Report Type: Spontaneous
  Country: US (occurrence: US)
  Receive Date: 20140226
  Receipt Date: 20140528
  Transmission Date: 20141212
  Serious: No
  Sender: FDA-Public Use
  Company Number: US-PFIZER INC-2014051928

PATIENT
  Age: 49 Year
  Sex: Female
  Weight: 65.76 kg

DRUGS (3)
  1. LEVOXYL [Suspect]
     Indication: HYPOTHYROIDISM
     Dosage: 25 UG, DAILY
     Route: 048
     Dates: start: 2002
  2. LEVOXYL [Suspect]
     Dosage: 0.0125 MG, 1X/DAY
     Route: 048
  3. LEVOXYL [Suspect]
     Dosage: 0.025 MG, 1X/DAY
     Route: 048

REACTIONS (16)
  - Dyspepsia [Unknown]
  - Sluggishness [Unknown]
  - Insomnia [Unknown]
  - Fatigue [Unknown]
  - Malaise [Unknown]
  - Menstrual disorder [Unknown]
  - Product quality issue [Unknown]
  - Blood thyroid stimulating hormone abnormal [Unknown]
  - Feeling abnormal [Unknown]
  - Nausea [Unknown]
  - Feeling jittery [Unknown]
  - Product physical issue [Unknown]
  - Product taste abnormal [Unknown]
  - Muscle spasms [Recovered/Resolved]
  - Blood thyroid stimulating hormone decreased [Unknown]
  - Feeling abnormal [Unknown]
